FAERS Safety Report 22156738 (Version 1)
Quarter: 2023Q1

REPORT INFORMATION
  Report Type: Spontaneous
  Country: US (occurrence: US)
  Receive Date: 20230330
  Receipt Date: 20230330
  Transmission Date: 20230418
  Serious: Yes (Hospitalization, Other)
  Sender: FDA-Public Use
  Company Number: US-BRISTOL-MYERS SQUIBB COMPANY-2023-043563

PATIENT
  Age: 81 Year
  Sex: Female

DRUGS (5)
  1. ELIQUIS [Suspect]
     Active Substance: APIXABAN
     Dosage: UNK
  2. METOPROLOL TARTRATE [Suspect]
     Active Substance: METOPROLOL TARTRATE
     Dosage: UNK
  3. DUPILUMAB [Suspect]
     Active Substance: DUPILUMAB
     Indication: Dermatitis atopic
     Dosage: 200 MG, WEEKLY (STRENGTH = 200 MG/1.14 ML)
     Route: 058
     Dates: start: 20220216
  4. IBUPROFEN [Suspect]
     Active Substance: IBUPROFEN
     Dosage: UNK
  5. ASPIRIN [Suspect]
     Active Substance: ASPIRIN
     Dosage: UNK

REACTIONS (3)
  - Ulcer [Unknown]
  - Haemorrhage [Unknown]
  - Blood pressure decreased [Unknown]
